FAERS Safety Report 16710747 (Version 1)
Quarter: 2019Q3

REPORT INFORMATION
  Report Type: Spontaneous
  Country: US (occurrence: US)
  Receive Date: 20190816
  Receipt Date: 20190816
  Transmission Date: 20191004
  Serious: Yes (Other)
  Sender: FDA-Public Use
  Company Number: US-ROCHE-2372155

PATIENT
  Sex: Male
  Weight: 75.82 kg

DRUGS (2)
  1. AVASTIN [Suspect]
     Active Substance: BEVACIZUMAB
     Indication: NEUROFIBROMATOSIS
     Dosage: UNKNOWN DOSE 5 MG/KG
     Route: 042
     Dates: start: 201805, end: 201907
  2. AVASTIN [Suspect]
     Active Substance: BEVACIZUMAB
     Indication: ACOUSTIC NEUROMA

REACTIONS (5)
  - Dyspnoea [Recovered/Resolved]
  - Laryngeal ulceration [Recovered/Resolved]
  - Off label use [Unknown]
  - Vocal cord paresis [Not Recovered/Not Resolved]
  - Intentional product use issue [Unknown]
